FAERS Safety Report 23275903 (Version 1)
Quarter: 2023Q4

REPORT INFORMATION
  Report Type: Spontaneous
  Country: CN (occurrence: CN)
  Receive Date: 20231208
  Receipt Date: 20231208
  Transmission Date: 20240110
  Serious: Yes (Hospitalization, Other)
  Sender: FDA-Public Use
  Company Number: CN-BAYER-2023A174664

PATIENT
  Age: 27 Year
  Sex: Female

DRUGS (1)
  1. AVELOX [Suspect]
     Active Substance: MOXIFLOXACIN HYDROCHLORIDE
     Indication: Mycoplasma infection
     Dosage: 1 DF, QD
     Route: 048
     Dates: start: 20231115, end: 20231116

REACTIONS (7)
  - Drug-induced liver injury [Recovering/Resolving]
  - Chromaturia [None]
  - Ocular icterus [None]
  - Nausea [None]
  - Vomiting [None]
  - Productive cough [None]
  - Abdominal pain upper [None]

NARRATIVE: CASE EVENT DATE: 20231115
